FAERS Safety Report 5965379-8 (Version None)
Quarter: 2008Q4

REPORT INFORMATION
  Report Type: 
  Country: None (occurrence: None)
  Receive Date: 20081124
  Receipt Date: 20081124
  Transmission Date: 20090506
  Serious: Yes (Life-Threatening, Hospitalization)
  Sender: FDA-Public Use
  Company Number: None

PATIENT
  Age: 47 Year
  Sex: Female
  Weight: 50.8029 kg

DRUGS (1)
  1. DURAGESIC-25 [Suspect]
     Indication: PROCEDURAL PAIN
     Dosage: 1 PATCH EA 3RD DAY CUTANEOUS
     Route: 003
     Dates: start: 20041108, end: 20041206

REACTIONS (9)
  - CHILLS [None]
  - DRUG WITHDRAWAL SYNDROME [None]
  - DYSPNOEA [None]
  - FEELING ABNORMAL [None]
  - HEART RATE INCREASED [None]
  - HYPERHIDROSIS [None]
  - INSOMNIA [None]
  - SUICIDAL IDEATION [None]
  - VOMITING [None]
